FAERS Safety Report 10574656 (Version 4)
Quarter: 2016Q3

REPORT INFORMATION
  Report Type: Spontaneous
  Country: US (occurrence: US)
  Receive Date: 20141110
  Receipt Date: 20160715
  Transmission Date: 20161109
  Serious: No
  Sender: FDA-Public Use
  Company Number: US-PFIZER INC-2014304960

PATIENT
  Age: 83 Year
  Sex: Female

DRUGS (7)
  1. XGEVA [Concomitant]
     Active Substance: DENOSUMAB
     Indication: RECURRENT CANCER
     Dosage: 120 MG, UNK
     Dates: start: 201408
  2. AROMASIN [Suspect]
     Active Substance: EXEMESTANE
     Indication: BREAST CANCER FEMALE
  3. AROMASIN [Suspect]
     Active Substance: EXEMESTANE
     Indication: BONE CANCER
  4. AROMASIN [Suspect]
     Active Substance: EXEMESTANE
     Indication: RECURRENT CANCER
  5. AROMASIN [Suspect]
     Active Substance: EXEMESTANE
     Indication: BREAST CANCER
     Dosage: 25 MG, DAILY (1 PILL DAILY AFTER MEALS)
     Route: 048
     Dates: start: 201408
  6. WARFARIN [Concomitant]
     Active Substance: WARFARIN
  7. CALCIUM WITH D [Concomitant]
     Active Substance: CALCIUM\VITAMIN D
     Dosage: 600 IU, UNK
     Dates: start: 201408

REACTIONS (3)
  - Fatigue [Not Recovered/Not Resolved]
  - Dizziness [Not Recovered/Not Resolved]
  - Headache [Not Recovered/Not Resolved]
